FAERS Safety Report 7503318-9 (Version None)
Quarter: 2011Q2

REPORT INFORMATION
  Report Type: 
  Country: None (occurrence: None)
  Receive Date: 20110525
  Receipt Date: 20110513
  Transmission Date: 20111010
  Serious: Yes (Hospitalization)
  Sender: FDA-Public Use
  Company Number: PHHY2011DE41350

PATIENT
  Age: 65 Year
  Sex: Male

DRUGS (3)
  1. CORTISONE ACETATE [Concomitant]
  2. ZOMETA [Suspect]
     Indication: PROSTATE CANCER
     Dosage: 4 MG/ 5 ML
     Route: 042
     Dates: start: 20080101, end: 20080807
  3. CHEMOTHERAPEUTICS,OTHER [Concomitant]

REACTIONS (1)
  - OSTEONECROSIS OF JAW [None]
